FAERS Safety Report 5640682-X (Version None)
Quarter: 2008Q1

REPORT INFORMATION
  Report Type: 
  Country: None (occurrence: None)
  Receive Date: 20080227
  Receipt Date: 20080221
  Transmission Date: 20080703
  Serious: Yes (Other)
  Sender: FDA-Public Use
  Company Number: PHEH2007US12512

PATIENT
  Age: 63 Year
  Sex: Female

DRUGS (6)
  1. ELIDEL [Suspect]
     Indication: ROSACEA
     Dosage: 30 G, QHS
     Route: 061
     Dates: start: 20010101, end: 20030101
  2. ALTACE [Concomitant]
     Dosage: UNK, UNK
  3. TOPROL-XL [Concomitant]
  4. LOPID [Concomitant]
     Dosage: UNK, UNK
  5. MAGNESIUM [Concomitant]
     Dosage: UNK, UNK
  6. TYLENOL (CAPLET) [Concomitant]
     Dosage: UNK, UNK

REACTIONS (7)
  - ABDOMINAL PAIN UPPER [None]
  - B-CELL LYMPHOMA [None]
  - INFECTION [None]
  - LYMPHADENOPATHY [None]
  - PANCYTOPENIA [None]
  - SPLENECTOMY [None]
  - SPLENOMEGALY [None]
